FAERS Safety Report 24958149 (Version 1)
Quarter: 2025Q1

REPORT INFORMATION
  Report Type: Spontaneous
  Country: CA (occurrence: CA)
  Receive Date: 20250212
  Receipt Date: 20250212
  Transmission Date: 20250408
  Serious: Yes (Death, Other)
  Sender: CSL BEHRING
  Company Number: CA-BEH-2025194651

PATIENT
  Age: 29 Year
  Sex: Male

DRUGS (3)
  1. HUMAN IMMUNOGLOBULIN G [Suspect]
     Active Substance: HUMAN IMMUNOGLOBULIN G
     Indication: Primary immunodeficiency syndrome
     Dosage: 9 G, QW
     Route: 058
  2. HIZENTRA [Concomitant]
     Active Substance: HUMAN IMMUNOGLOBULIN G
     Route: 065
  3. MOXIFLOXACIN HYDROCHLORIDE [Concomitant]
     Active Substance: MOXIFLOXACIN HYDROCHLORIDE
     Route: 065

REACTIONS (2)
  - Death [Fatal]
  - Off label use [Unknown]
